FAERS Safety Report 7819003-X (Version None)
Quarter: 2011Q4

REPORT INFORMATION
  Report Type: 
  Country: None (occurrence: None)
  Receive Date: 20111018
  Receipt Date: 20111007
  Transmission Date: 20120403
  Serious: Yes (Hospitalization)
  Sender: FDA-Public Use
  Company Number: US-JNJFOC-20100803434

PATIENT
  Sex: Female
  Weight: 113.4 kg

DRUGS (11)
  1. REMICADE [Suspect]
     Route: 042
     Dates: start: 20090701
  2. REMICADE [Suspect]
     Route: 042
     Dates: start: 20090901
  3. CYMBALTA [Concomitant]
  4. BENTYL [Concomitant]
  5. REMICADE [Suspect]
     Indication: CROHN'S DISEASE
     Route: 042
     Dates: start: 20090801
  6. PREDNISONE [Concomitant]
     Indication: CROHN'S DISEASE
  7. NEXIUM [Concomitant]
  8. PRED FORTE [Concomitant]
  9. XANAX [Concomitant]
  10. SYSTANE [Concomitant]
     Route: 047
  11. PAIN MEDICATION NOS [Concomitant]

REACTIONS (9)
  - ABSCESS INTESTINAL [None]
  - BURNING SENSATION [None]
  - OVULATION PAIN [None]
  - MENISCUS LESION [None]
  - NEUROPATHY PERIPHERAL [None]
  - PAIN IN EXTREMITY [None]
  - ARTHRALGIA [None]
  - X-RAY ABNORMAL [None]
  - HYPERHIDROSIS [None]
